FAERS Safety Report 8582563-8 (Version None)
Quarter: 2012Q3

REPORT INFORMATION
  Report Type: 
  Country: None (occurrence: None)
  Receive Date: 20120809
  Receipt Date: 20120731
  Transmission Date: 20120928
  Serious: Yes (Other)
  Sender: FDA-Public Use
  Company Number: US-ASTRAZENECA-2012SE54348

PATIENT
  Age: 67 Year
  Sex: Female

DRUGS (2)
  1. SYMBICORT [Suspect]
     Route: 055
  2. TOPROL-XL [Suspect]
     Route: 048

REACTIONS (3)
  - CHRONIC OBSTRUCTIVE PULMONARY DISEASE [None]
  - DIABETES MELLITUS [None]
  - LOWER LIMB FRACTURE [None]
